FAERS Safety Report 22184332 (Version 5)
Quarter: 2025Q3

REPORT INFORMATION
  Report Type: Report from Study
  Country: CA (occurrence: CA)
  Receive Date: 20230407
  Receipt Date: 20250829
  Transmission Date: 20251021
  Serious: Yes (Hospitalization)
  Sender: ROCHE
  Company Number: CA-002147023-NVSC2022CA210065

PATIENT
  Age: 39 Year
  Sex: Female
  Weight: 158.3 kg

DRUGS (42)
  1. XOLAIR [Suspect]
     Active Substance: OMALIZUMAB
     Indication: Asthma
     Dosage: 300 MG, EVERY 4 WEEKS
     Route: 058
     Dates: start: 20220914
  2. XOLAIR [Suspect]
     Active Substance: OMALIZUMAB
     Dosage: 300 MG, EVERY 4 WEEKS
     Route: 058
     Dates: start: 20230104
  3. XOLAIR [Suspect]
     Active Substance: OMALIZUMAB
     Route: 058
  4. XOLAIR [Suspect]
     Active Substance: OMALIZUMAB
     Route: 058
     Dates: start: 20230426
  5. XOLAIR [Suspect]
     Active Substance: OMALIZUMAB
     Route: 058
     Dates: start: 20230621
  6. XOLAIR [Suspect]
     Active Substance: OMALIZUMAB
     Route: 058
     Dates: start: 20220914
  7. XOLAIR [Suspect]
     Active Substance: OMALIZUMAB
     Route: 058
     Dates: start: 20230816
  8. XOLAIR [Suspect]
     Active Substance: OMALIZUMAB
     Route: 058
     Dates: start: 20230913
  9. XOLAIR [Suspect]
     Active Substance: OMALIZUMAB
     Route: 058
  10. XOLAIR [Suspect]
     Active Substance: OMALIZUMAB
     Route: 058
     Dates: start: 20240228
  11. BILASTINE [Concomitant]
     Active Substance: BILASTINE
     Indication: Asthma
     Dosage: 1 DOSAGE FORM, QD
     Route: 050
     Dates: start: 2022
  12. BILASTINE [Concomitant]
     Active Substance: BILASTINE
     Route: 050
     Dates: start: 2022
  13. BILASTINE [Concomitant]
     Active Substance: BILASTINE
     Dosage: 1 DOSAGE FORM, BID (20-40 MG)
     Route: 050
  14. BILASTINE [Concomitant]
     Active Substance: BILASTINE
     Dosage: 1 DOSAGE FORM, BID (20-40 MG)
     Route: 050
  15. BILASTINE [Concomitant]
     Active Substance: BILASTINE
     Dosage: 1 DOSAGE FORM, BID (20-40 MG)
  16. PREDNISONE [Concomitant]
     Active Substance: PREDNISONE
     Indication: Product used for unknown indication
     Dosage: QD (50/40/50)
     Route: 050
     Dates: start: 20230108, end: 20230113
  17. PREDNISONE [Concomitant]
     Active Substance: PREDNISONE
     Dosage: QD (50/40/50 MG)
     Route: 065
     Dates: start: 202307, end: 202307
  18. PREDNISONE [Concomitant]
     Active Substance: PREDNISONE
     Route: 050
     Dates: start: 20231018, end: 20231022
  19. PREDNISONE [Concomitant]
     Active Substance: PREDNISONE
     Route: 065
  20. PREDNISONE [Concomitant]
     Active Substance: PREDNISONE
     Route: 065
  21. PREDNISONE [Concomitant]
     Active Substance: PREDNISONE
  22. LEVOFLOXACIN [Concomitant]
     Active Substance: LEVOFLOXACIN
     Indication: Product used for unknown indication
     Route: 050
     Dates: start: 20230714, end: 20230720
  23. LEVOFLOXACIN [Concomitant]
     Active Substance: LEVOFLOXACIN
     Dates: start: 20230714
  24. ATROVENT [Concomitant]
     Active Substance: IPRATROPIUM BROMIDE
     Indication: Product used for unknown indication
     Route: 050
     Dates: start: 20230713
  25. ATROVENT [Concomitant]
     Active Substance: IPRATROPIUM BROMIDE
     Route: 065
  26. CETIRIZINE [Concomitant]
     Active Substance: CETIRIZINE HYDROCHLORIDE
     Indication: Product used for unknown indication
     Route: 050
  27. CETIRIZINE [Concomitant]
     Active Substance: CETIRIZINE HYDROCHLORIDE
     Route: 050
  28. CEFPROZIL [Concomitant]
     Active Substance: CEFPROZIL
     Indication: Product used for unknown indication
     Route: 050
     Dates: start: 20231130
  29. EPIPEN [Concomitant]
     Active Substance: EPINEPHRINE
     Indication: Product used for unknown indication
  30. FERROUS FUMARATE [Concomitant]
     Active Substance: FERROUS FUMARATE
     Indication: Product used for unknown indication
     Dosage: 1000 MG, QD
     Route: 065
  31. INCRUSE ELLIPTA [Concomitant]
     Active Substance: UMECLIDINIUM BROMIDE
  32. ZENHALE [Concomitant]
     Active Substance: FORMOTEROL FUMARATE\MOMETASONE FUROATE
     Indication: Asthma
     Dosage: 2 DOSAGE FORM, BID (PUFF)
     Route: 050
     Dates: start: 202304
  33. ZENHALE [Concomitant]
     Active Substance: FORMOTEROL FUMARATE\MOMETASONE FUROATE
     Route: 065
  34. ZENHALE [Concomitant]
     Active Substance: FORMOTEROL FUMARATE\MOMETASONE FUROATE
     Dosage: 2 DOSAGE FORM, QD
     Route: 050
  35. ZENHALE [Concomitant]
     Active Substance: FORMOTEROL FUMARATE\MOMETASONE FUROATE
     Route: 065
  36. ZENHALE [Concomitant]
     Active Substance: FORMOTEROL FUMARATE\MOMETASONE FUROATE
     Dosage: 2 DOSAGE FORM, QD
     Route: 050
  37. ZENHALE [Concomitant]
     Active Substance: FORMOTEROL FUMARATE\MOMETASONE FUROATE
  38. ZENHALE [Concomitant]
     Active Substance: FORMOTEROL FUMARATE\MOMETASONE FUROATE
     Route: 065
  39. BENADRYL [Concomitant]
     Active Substance: DIPHENHYDRAMINE HYDROCHLORIDE
  40. SYMBICORT [Concomitant]
     Active Substance: BUDESONIDE\FORMOTEROL FUMARATE DIHYDRATE
  41. VENTOLIN [Concomitant]
     Active Substance: ALBUTEROL SULFATE
  42. BILASTINE [Concomitant]
     Active Substance: BILASTINE

REACTIONS (34)
  - Loss of consciousness [Recovering/Resolving]
  - Wheezing [Not Recovered/Not Resolved]
  - Dyspnoea [Not Recovered/Not Resolved]
  - Cystitis [Recovering/Resolving]
  - Kidney infection [Recovering/Resolving]
  - Chest discomfort [Unknown]
  - Cough [Unknown]
  - Feeling hot [Recovering/Resolving]
  - Skin abrasion [Unknown]
  - Mass [Unknown]
  - Weight decreased [Unknown]
  - Aphonia [Recovering/Resolving]
  - Heart rate increased [Unknown]
  - Malaise [Unknown]
  - Pulmonary mass [Unknown]
  - Sinusitis [Unknown]
  - COVID-19 [Unknown]
  - Respiratory symptom [Unknown]
  - Erythema [Unknown]
  - Asthma [Not Recovered/Not Resolved]
  - Flushing [Unknown]
  - Pruritus [Unknown]
  - Drug ineffective [Unknown]
  - Blood iron decreased [Unknown]
  - Feeling hot [Recovering/Resolving]
  - Heart rate increased [Unknown]
  - Blood iron decreased [Unknown]
  - Fatigue [Unknown]
  - Weight increased [Unknown]
  - Ear inflammation [Unknown]
  - Pneumonitis [Unknown]
  - Fall [Unknown]
  - Tremor [Unknown]
  - Asthenia [Unknown]

NARRATIVE: CASE EVENT DATE: 20220914
